FAERS Safety Report 22890073 (Version 6)
Quarter: 2024Q2

REPORT INFORMATION
  Report Type: Spontaneous
  Country: IN (occurrence: IN)
  Receive Date: 20230831
  Receipt Date: 20240513
  Transmission Date: 20240715
  Serious: Yes (Hospitalization)
  Sender: FDA-Public Use
  Company Number: IN-PFIZER INC-PV202200078461

PATIENT
  Age: 61 Year
  Sex: Female

DRUGS (5)
  1. PALBOCICLIB [Suspect]
     Active Substance: PALBOCICLIB
     Indication: Breast cancer female
     Dosage: 125 MG, CYCLIC (ONCE DAILY X 3 MONTH)
     Route: 048
     Dates: start: 20220323
  2. PALBOCICLIB [Suspect]
     Active Substance: PALBOCICLIB
     Dosage: 125 MG, 1X/DAY
     Route: 048
  3. PALBOCICLIB [Suspect]
     Active Substance: PALBOCICLIB
     Dosage: 125 MG, CYCLIC (1 TAB DAILY, 21 DAYS ON, 7 DAYS OFF)
  4. LETROZOLE [Concomitant]
     Active Substance: LETROZOLE
     Dosage: 1 TAB DAILY
  5. CALCIUM\CHOLECALCIFEROL [Concomitant]
     Active Substance: CALCIUM\CHOLECALCIFEROL
     Dosage: 1 TAB DAILY

REACTIONS (4)
  - Blood sodium decreased [Unknown]
  - Blood potassium decreased [Unknown]
  - Neoplasm progression [Unknown]
  - Hypertension [Not Recovered/Not Resolved]

NARRATIVE: CASE EVENT DATE: 20220425
